FAERS Safety Report 21249534 (Version 2)
Quarter: 2023Q1

REPORT INFORMATION
  Report Type: Spontaneous
  Country: CA (occurrence: CA)
  Receive Date: 20220824
  Receipt Date: 20230117
  Transmission Date: 20230417
  Serious: Yes (Other)
  Sender: FDA-Public Use
  Company Number: CA-TAKEDA-2022TUS058639

PATIENT
  Age: 42 Year
  Sex: Female

DRUGS (5)
  1. MESALAMINE [Suspect]
     Active Substance: MESALAMINE
     Indication: Product used for unknown indication
     Dosage: UNK
     Route: 065
  2. CETIRIZINE [Interacting]
     Active Substance: CETIRIZINE HYDROCHLORIDE
     Indication: Product used for unknown indication
     Dosage: UNK
     Route: 065
  3. MONTELUKAST [Interacting]
     Active Substance: MONTELUKAST SODIUM
     Indication: Chronic spontaneous urticaria
     Dosage: UNK
     Route: 065
  4. ASPIRIN [Concomitant]
     Active Substance: ASPIRIN
     Indication: Product used for unknown indication
     Dosage: UNK
     Route: 065
  5. Reactine [Concomitant]
     Indication: Product used for unknown indication
     Dosage: UNK
     Route: 065

REACTIONS (14)
  - COVID-19 [Unknown]
  - Drug interaction [Unknown]
  - Oral allergy syndrome [Unknown]
  - Proctitis [Recovering/Resolving]
  - Rhinitis allergic [Unknown]
  - Swelling [Unknown]
  - Urticaria chronic [Unknown]
  - Rectal tenesmus [Not Recovered/Not Resolved]
  - Pneumonia [Unknown]
  - Angioedema [Unknown]
  - Asthma [Unknown]
  - Urticaria [Unknown]
  - Drug intolerance [Unknown]
  - Product use in unapproved indication [Unknown]
